FAERS Safety Report 7322142-3 (Version None)
Quarter: 2011Q1

REPORT INFORMATION
  Report Type: 
  Country: None (occurrence: None)
  Receive Date: 20110228
  Receipt Date: 20101102
  Transmission Date: 20110831
  Serious: Yes (Death)
  Sender: FDA-Public Use
  Company Number: US-CELGENEUS-163-21880-10101695

PATIENT
  Sex: Male

DRUGS (16)
  1. PULMICORT [Concomitant]
     Dosage: TWICE A DAY
     Route: 055
  2. LORAZEPAM [Concomitant]
     Dosage: 1 MILLIGRAM
     Route: 048
     Dates: start: 20100625
  3. INSULIN [Concomitant]
     Dosage: 3-6 UNITS
     Route: 065
     Dates: start: 20100930
  4. REVLIMID [Suspect]
     Indication: MYELODYSPLASTIC SYNDROME
     Dosage: 5 MILLIGRAM
     Route: 048
     Dates: start: 20100827, end: 20101017
  5. METHYLPREDNISOLONE [Concomitant]
     Dosage: 4 MILLIGRAM
     Route: 048
     Dates: start: 20100915
  6. POLYETHYLENE GLYCOL [Concomitant]
     Dosage: 17 GRAM
     Route: 048
     Dates: start: 20100928
  7. PREDNISONE [Concomitant]
     Dosage: 20 MILLIGRAM
     Route: 065
     Dates: start: 20100930
  8. LINEZOLID [Concomitant]
     Dosage: 600 MILLIGRAM
     Route: 065
     Dates: start: 20100930
  9. ATROVENT [Concomitant]
     Route: 055
  10. EXJADE [Concomitant]
     Dosage: 1000 MILLIGRAM
     Route: 048
     Dates: start: 20100916
  11. GUAIFENESIN [Concomitant]
     Route: 065
     Dates: start: 20100924
  12. SEREVENT [Concomitant]
     Dosage: 1 PUFF
     Route: 055
  13. ACCOLATE [Concomitant]
     Dosage: 20 MILLIGRAM
     Route: 048
  14. ACETAMINOPHEN [Concomitant]
     Route: 048
  15. MULTI-VITAMINS [Concomitant]
     Dosage: 1 TABLET
     Route: 048
  16. PRAVASTATIN [Concomitant]
     Route: 065

REACTIONS (1)
  - PULMONARY FIBROSIS [None]
